FAERS Safety Report 10524349 (Version 1)
Quarter: 2014Q4

REPORT INFORMATION
  Report Type: Spontaneous
  Country: US (occurrence: None)
  Receive Date: 20141015
  Receipt Date: 20141015
  Transmission Date: 20150528
  Serious: Yes (Other)
  Sender: FDA-Public Use
  Company Number: None

PATIENT
  Age: 56 Year
  Sex: Male
  Weight: 95.26 kg

DRUGS (4)
  1. DENDRACIN NEURODENDRAXCIN [Suspect]
     Active Substance: CAPSAICIN\MENTHOL\METHYL SALICYLATE
     Indication: ROTATOR CUFF REPAIR
     Dosage: APPLY 3 TIMES A DAY
     Dates: start: 201409
  2. TRAMADOL 50 MG [Suspect]
     Active Substance: TRAMADOL
     Indication: ROTATOR CUFF REPAIR
     Dosage: 1 TAB 3 TIMES A DAY
     Dates: start: 201406, end: 201409
  3. TRAMADOL 50 MG [Suspect]
     Active Substance: TRAMADOL
     Indication: PAIN
     Dosage: 1 TAB 3 TIMES A DAY
     Dates: start: 201406, end: 201409
  4. DENDRACIN NEURODENDRAXCIN [Suspect]
     Active Substance: CAPSAICIN\MENTHOL\METHYL SALICYLATE
     Indication: PAIN
     Dosage: APPLY 3 TIMES A DAY
     Dates: start: 201409

REACTIONS (4)
  - Drug hypersensitivity [None]
  - Drug ineffective [None]
  - Burning sensation [None]
  - Sneezing [None]

NARRATIVE: CASE EVENT DATE: 20140203
